FAERS Safety Report 10171575 (Version 1)
Quarter: 2014Q2

REPORT INFORMATION
  Report Type: Spontaneous
  Country: US (occurrence: None)
  Receive Date: 20140512
  Receipt Date: 20140512
  Transmission Date: 20141212
  Serious: Yes (Other)
  Sender: FDA-Public Use
  Company Number: HA13-193-AE

PATIENT
  Age: 60 Year
  Sex: Male
  Weight: 99.79 kg

DRUGS (2)
  1. TRAMADOL HCL [Suspect]
     Indication: ARTHRALGIA
     Dosage: 2 TABLETS A DAY, ORAL
     Route: 048
  2. ATENOLOL [Concomitant]

REACTIONS (4)
  - Restless legs syndrome [None]
  - Tinnitus [None]
  - Listless [None]
  - Mood swings [None]
